FAERS Safety Report 6586922 (Version 5)
Quarter: 2020Q3

REPORT INFORMATION
  Report Type: Spontaneous
  Country: DK (occurrence: DK)
  Receive Date: 20080318
  Receipt Date: 20110218
  Transmission Date: 20201104
  Serious: Yes (Other)
  Sender: FDA-Public Use
  Company Number: DK-ROCHE-551846

PATIENT
  Age: 66 Year
  Sex: Female
  Weight: 57 kg

DRUGS (7)
  1. IBANDRONIC ACID. [Suspect]
     Active Substance: IBANDRONIC ACID
     Indication: BREAST CANCER METASTATIC
     Dosage: FORM: FILM?COATED TABLET.
     Route: 048
     Dates: start: 20060213, end: 20071214
  2. ARIMIDEX [Concomitant]
     Active Substance: ANASTROZOLE
     Dosage: FORM: FILM?COATED TABLET.
     Route: 048
     Dates: start: 20060213, end: 20070530
  3. FLUOROURACIL. [Concomitant]
     Active Substance: FLUOROURACIL
     Dosage: DRUG REPORTED AS FLUOROURACIL (CEF CURE).
     Dates: start: 20071217
  4. ZOMETA [Suspect]
     Active Substance: ZOLEDRONIC ACID
     Dosage: FORM REPORTED AS POW. AND SOLV.
     Route: 042
     Dates: start: 20071217
  5. AROMASIN [Concomitant]
     Active Substance: EXEMESTANE
     Route: 048
     Dates: start: 20070530
  6. CYCLOPHOSPHAMIDE. [Concomitant]
     Active Substance: CYCLOPHOSPHAMIDE
     Dosage: DRUG REPORTED AS CYLCOPHOSPHAMIDE (CEF CURE).
     Dates: start: 20071217
  7. EPIRUBICIN [Concomitant]
     Active Substance: EPIRUBICIN
     Dosage: DRUG REPORTED AS EPIRUBICIN (CEF CURE).
     Dates: start: 20071217

REACTIONS (11)
  - Infection [Unknown]
  - Swelling [Unknown]
  - Abscess [Unknown]
  - Sensory disturbance [Unknown]
  - Osteonecrosis of jaw [Unknown]
  - Oral mucosa erosion [Unknown]
  - Pain in jaw [Unknown]
  - Paraesthesia [Unknown]
  - Bone disorder [Unknown]
  - Osteonecrosis [Unknown]
  - Oral disorder [Unknown]

NARRATIVE: CASE EVENT DATE: 20070609
